FAERS Safety Report 4926185-6 (Version None)
Quarter: 2006Q1

REPORT INFORMATION
  Report Type: 
  Country: None (occurrence: None)
  Receive Date: 20060228
  Receipt Date: 20060217
  Transmission Date: 20060701
  Serious: Yes (Other)
  Sender: FDA-Public Use
  Company Number: US-ABBOTT-06P-163-0325333-00

PATIENT
  Sex: Female
  Weight: 63.56 kg

DRUGS (10)
  1. KALETRA [Suspect]
     Indication: HIV INFECTION
     Route: 048
     Dates: start: 20020101, end: 20060207
  2. KALETRA [Suspect]
     Indication: HIV INFECTION
     Route: 048
     Dates: start: 20060208, end: 20060216
  3. KALETRA [Suspect]
     Route: 048
     Dates: start: 20060217, end: 20060219
  4. KALETRA [Suspect]
     Route: 048
     Dates: start: 20060220
  5. OMEPRAZOLE [Concomitant]
     Indication: GASTROOESOPHAGEAL REFLUX DISEASE
     Route: 048
  6. DIAZEPAM [Concomitant]
     Indication: ANXIETY
     Dosage: 2 TABS BID
     Route: 048
     Dates: start: 20020101
  7. METHADONE [Concomitant]
     Indication: DRUG WITHDRAWAL SYNDROME
     Dosage: 40MG AM; 45MG PM
     Route: 048
     Dates: start: 20020101
  8. PROVELLA-14 [Concomitant]
     Indication: HORMONE REPLACEMENT THERAPY
     Route: 048
     Dates: start: 20040101
  9. NEVIRAPINE [Concomitant]
     Indication: HIV INFECTION
     Route: 048
     Dates: start: 20020101
  10. ATENOLOL [Concomitant]
     Indication: HYPERTENSION
     Route: 048

REACTIONS (19)
  - ABDOMINAL DISCOMFORT [None]
  - ACCIDENTAL OVERDOSE [None]
  - BACK PAIN [None]
  - BLOOD PRESSURE INCREASED [None]
  - CHEST DISCOMFORT [None]
  - CHROMATURIA [None]
  - CONSTIPATION [None]
  - DIARRHOEA [None]
  - DIZZINESS [None]
  - GASTROOESOPHAGEAL REFLUX DISEASE [None]
  - HEADACHE [None]
  - HEART RATE IRREGULAR [None]
  - INSOMNIA [None]
  - LOSS OF CONSCIOUSNESS [None]
  - LYMPHOMA [None]
  - MALAISE [None]
  - NAUSEA [None]
  - PALPITATIONS [None]
  - RESPIRATORY RATE INCREASED [None]
